FAERS Safety Report 6981176-9 (Version None)
Quarter: 2010Q3

REPORT INFORMATION
  Report Type: 
  Country: None (occurrence: None)
  Receive Date: 20100914
  Receipt Date: 20100903
  Transmission Date: 20110219
  Serious: Yes (Other)
  Sender: FDA-Public Use
  Company Number: JP-MERCK-1009USA01157

PATIENT
  Age: 65 Year
  Sex: Female

DRUGS (7)
  1. PEPCID RPD [Suspect]
     Route: 048
  2. BUCILLAMINE [Suspect]
     Indication: RHEUMATOID ARTHRITIS
     Route: 048
     Dates: end: 20100201
  3. PREDONINE [Concomitant]
     Route: 048
  4. RIMATIL [Concomitant]
     Route: 048
  5. AMLODIPINE BESYLATE [Concomitant]
     Route: 048
  6. ALFAROL [Concomitant]
     Route: 065
  7. FOSAMAX [Concomitant]
     Route: 048

REACTIONS (3)
  - AGEUSIA [None]
  - MOUTH ULCERATION [None]
  - STOMATITIS [None]
